FAERS Safety Report 16836551 (Version 3)
Quarter: 2019Q4

REPORT INFORMATION
  Report Type: Spontaneous
  Country: JP (occurrence: JP)
  Receive Date: 20190921
  Receipt Date: 20191026
  Transmission Date: 20200122
  Serious: Yes (Death, Other)
  Sender: FDA-Public Use
  Company Number: JP-AMGEN-JPNSP2019154661

PATIENT
  Age: 91 Year
  Sex: Female

DRUGS (10)
  1. OLMESARTAN MEDOXOMIL. [Concomitant]
     Active Substance: OLMESARTAN MEDOXOMIL
     Dosage: UNK UNK, (1 TABLET) QD
  2. MAGNESIUM OXIDE. [Concomitant]
     Active Substance: MAGNESIUM OXIDE
     Dosage: UNK UNK, (1 TABLET) TID
  3. LYRICA [Concomitant]
     Active Substance: PREGABALIN
     Indication: LUMBAR SPINAL STENOSIS
     Dosage: 75 MILLIGRAM, QD
     Dates: start: 20181126
  4. CELECOX [Concomitant]
     Active Substance: CELECOXIB
     Indication: LUMBAR VERTEBRAL FRACTURE
     Dosage: UNK UNK, (1 TABLET) BID
     Dates: start: 20190603
  5. JUVELA [TOCOPHERYL ACETATE] [Concomitant]
     Active Substance: .ALPHA.-TOCOPHEROL ACETATE
     Dosage: UNK UNK, (1 TABLET) BID
  6. MECOBALAMIN [Concomitant]
     Active Substance: METHYLCOBALAMIN
     Dosage: UNK UNK, (1 TABLET) TID
  7. RABEPRAZOLE NA [Concomitant]
     Active Substance: RABEPRAZOLE SODIUM
     Dosage: UNK UNK, (1 TABLET) QD
  8. URSO [Concomitant]
     Active Substance: URSODIOL
     Dosage: UNK UNK, (1 TABLET) TID
  9. VESICARE [Concomitant]
     Active Substance: SOLIFENACIN SUCCINATE
     Dosage: UNK UNK, (1 TABLET) QD
  10. EVENITY [Suspect]
     Active Substance: ROMOSOZUMAB-AQQG
     Indication: OSTEOPOROSIS
     Dosage: 210 MILLIGRAM
     Route: 058
     Dates: start: 20190605, end: 20190807

REACTIONS (1)
  - Death [Fatal]

NARRATIVE: CASE EVENT DATE: 20190822
